FAERS Safety Report 5533888-1 (Version None)
Quarter: 2007Q4

REPORT INFORMATION
  Report Type: 
  Country: None (occurrence: None)
  Receive Date: 20071129
  Receipt Date: 20071120
  Transmission Date: 20080405
  Serious: Yes (Hospitalization)
  Sender: FDA-Public Use
  Company Number: 2007SP023346

PATIENT
  Age: 40 Year
  Sex: Male
  Weight: 67 kg

DRUGS (4)
  1. PEG-INTRON [Suspect]
     Indication: HEPATITIS C
     Dosage: 100 MCG; QW;SC; 50 MCG;QW;SC
     Route: 058
     Dates: start: 20060707, end: 20060712
  2. PEG-INTRON [Suspect]
     Indication: HEPATITIS C
     Dosage: 100 MCG; QW;SC; 50 MCG;QW;SC
     Route: 058
     Dates: start: 20060719, end: 20070112
  3. REBETOL [Suspect]
     Indication: HEPATITIS C
     Dosage: 800 MG;QD;PO
     Route: 048
     Dates: start: 20060707, end: 20070112
  4. FAMOTIDINE [Concomitant]

REACTIONS (8)
  - CONDITION AGGRAVATED [None]
  - HAEMATOMA [None]
  - NASAL POLYPS [None]
  - PLATELET COUNT DECREASED [None]
  - RHINITIS ALLERGIC [None]
  - SINUS DISORDER [None]
  - SINUSITIS [None]
  - WHITE BLOOD CELL COUNT DECREASED [None]
